FAERS Safety Report 17748253 (Version 2)
Quarter: 2020Q2

REPORT INFORMATION
  Report Type: Spontaneous
  Country: US (occurrence: US)
  Receive Date: 20200505
  Receipt Date: 20200528
  Transmission Date: 20200714
  Serious: Yes (Life-Threatening, Hospitalization, Other)
  Sender: FDA-Public Use
  Company Number: US-NAPPMUNDI-USA-2020-0152392

PATIENT
  Age: 49 Year
  Sex: Female

DRUGS (4)
  1. OXYCONTIN [Suspect]
     Active Substance: OXYCODONE HYDROCHLORIDE
     Indication: PAIN
     Dosage: 2 X 10 MG, QID
     Route: 048
     Dates: start: 199708, end: 201707
  2. XARELTO [Concomitant]
     Active Substance: RIVAROXABAN
     Indication: ANTICOAGULANT THERAPY
  3. AMBIEN [Suspect]
     Active Substance: ZOLPIDEM TARTRATE
     Indication: SLEEP DISORDER
     Route: 048
  4. OXYCONTIN [Suspect]
     Active Substance: OXYCODONE HYDROCHLORIDE
     Dosage: 4 X 10 MG, BID
     Route: 048
     Dates: start: 199708, end: 201707

REACTIONS (10)
  - Overdose [Unknown]
  - Hospitalisation [Unknown]
  - Hallucination [Unknown]
  - Off label use [Recovered/Resolved]
  - Deep vein thrombosis [Unknown]
  - Pulmonary thrombosis [Unknown]
  - Bedridden [Unknown]
  - Thrombosis [Unknown]
  - Involuntary commitment [Unknown]
  - Overwork [Unknown]

NARRATIVE: CASE EVENT DATE: 199708
